FAERS Safety Report 12402829 (Version 1)
Quarter: 2016Q2

REPORT INFORMATION
  Report Type: Spontaneous
  Country: US (occurrence: US)
  Receive Date: 20160525
  Receipt Date: 20160525
  Transmission Date: 20160815
  Serious: No
  Sender: FDA-Public Use
  Company Number: US-MALLINCKRODT-T201505657

PATIENT
  Age: 68 Year
  Sex: Male

DRUGS (2)
  1. MORPHINE SULFATE. [Suspect]
     Active Substance: MORPHINE SULFATE
     Indication: PRODUCT USED FOR UNKNOWN INDICATION
     Dosage: UNK
     Route: 065
     Dates: start: 201510
  2. OFIRMEV [Suspect]
     Active Substance: ACETAMINOPHEN
     Indication: PRODUCT USED FOR UNKNOWN INDICATION
     Dosage: UNK
     Route: 065
     Dates: start: 201510, end: 201510

REACTIONS (5)
  - Weight decreased [Unknown]
  - Vomiting [Recovered/Resolved]
  - Procedural pain [Unknown]
  - Constipation [Recovered/Resolved]
  - Abnormal dreams [Unknown]

NARRATIVE: CASE EVENT DATE: 2015
